FAERS Safety Report 19467694 (Version 1)
Quarter: 2021Q2

REPORT INFORMATION
  Report Type: Spontaneous
  Country: US (occurrence: US)
  Receive Date: 20210628
  Receipt Date: 20210628
  Transmission Date: 20210717
  Serious: No
  Sender: FDA-Public Use
  Company Number: None

PATIENT
  Sex: Male

DRUGS (1)
  1. DOTAREM [Suspect]
     Active Substance: GADOTERATE MEGLUMINE

REACTIONS (1)
  - Skin discolouration [None]

NARRATIVE: CASE EVENT DATE: 20210601
